FAERS Safety Report 5528971-0 (Version None)
Quarter: 2007Q4

REPORT INFORMATION
  Report Type: 
  Country: None (occurrence: None)
  Receive Date: 20071109
  Receipt Date: 20070601
  Transmission Date: 20080405
  Serious: Yes (Other)
  Sender: FDA-Public Use
  Company Number: PHEH2005US04201

PATIENT
  Age: 66 Year
  Sex: Female
  Weight: 58.5 kg

DRUGS (5)
  1. ESTRADERM [Suspect]
     Indication: HORMONE REPLACEMENT THERAPY
     Dosage: 0.5 MG, TRANSDERMAL
     Route: 062
     Dates: start: 19960127, end: 19970503
  2. PROVERA [Suspect]
     Indication: HORMONE REPLACEMENT THERAPY
     Dosage: 10 MG, ORAL
     Route: 048
     Dates: start: 19900101, end: 19970317
  3. PREMPRO [Suspect]
     Indication: HORMONE REPLACEMENT THERAPY
     Dosage: 2.5 MG, ORAL
     Route: 048
     Dates: start: 19970607, end: 20000523
  4. PREMARIN [Suspect]
     Indication: HORMONE REPLACEMENT THERAPY
     Dosage: TOPICAL
     Route: 061
     Dates: start: 20011005, end: 20011005
  5. CHLORTHALIDONE [Concomitant]

REACTIONS (12)
  - BLOOD CHOLESTEROL INCREASED [None]
  - BRACHYTHERAPY TO BREAST [None]
  - BREAST CANCER [None]
  - BREAST CYST [None]
  - BREAST MICROCALCIFICATION [None]
  - DIAGNOSTIC PROCEDURE [None]
  - FIBROCYSTIC BREAST DISEASE [None]
  - HYPERTENSION [None]
  - MALIGNANT BREAST LUMP REMOVAL [None]
  - MASTECTOMY [None]
  - OSTEOPENIA [None]
  - RADIOTHERAPY [None]
